FAERS Safety Report 4790396-3 (Version None)
Quarter: 2005Q4

REPORT INFORMATION
  Report Type: 
  Country: None (occurrence: None)
  Receive Date: 20051005
  Receipt Date: 20050921
  Transmission Date: 20060501
  Serious: Yes (Other)
  Sender: FDA-Public Use
  Company Number: 430035M05USA

PATIENT
  Age: 40 Year
  Sex: Male

DRUGS (10)
  1. NOVANTRONE [Suspect]
     Indication: MULTIPLE SCLEROSIS
     Dosage: 12 MG/M2
     Dates: start: 20050801
  2. KLONOPIN [Concomitant]
  3. NEURONTIN [Concomitant]
  4. BACLOFEN [Concomitant]
  5. KEPPRA [Concomitant]
  6. ZOLOFT [Concomitant]
  7. COPAXONE [Concomitant]
  8. AMBIEN [Concomitant]
  9. PROTONIX [Concomitant]
  10. COLACE (DOCUSATE SODIUM) [Concomitant]

REACTIONS (1)
  - EJECTION FRACTION DECREASED [None]
